FAERS Safety Report 10791179 (Version 1)
Quarter: 2015Q1

REPORT INFORMATION
  Report Type: Spontaneous
  Country: US (occurrence: US)
  Receive Date: 20150212
  Receipt Date: 20150212
  Transmission Date: 20150721
  Serious: Yes (Other)
  Sender: FDA-Public Use
  Company Number: US-FRI-1000074268

PATIENT
  Sex: Male

DRUGS (1)
  1. TEFLARO [Suspect]
     Active Substance: CEFTAROLINE FOSAMIL
     Indication: STAPHYLOCOCCAL INFECTION

REACTIONS (1)
  - Agranulocytosis [Recovered/Resolved]
